FAERS Safety Report 4341592-0 (Version None)
Quarter: 2004Q2

REPORT INFORMATION
  Report Type: 
  Country: None (occurrence: None)
  Receive Date: 20040415
  Receipt Date: 20040406
  Transmission Date: 20050107
  Serious: Yes (Death)
  Sender: FDA-Public Use
  Company Number: 163-20785-03110166

PATIENT
  Age: 67 Year
  Sex: Male

DRUGS (1)
  1. THALOMID [Suspect]
     Indication: MULTIPLE MYELOMA
     Dosage: 50 MG, DAILY, ORAL
     Route: 048
     Dates: start: 20030910, end: 20030101

REACTIONS (18)
  - ABDOMINAL DISTENSION [None]
  - AGGRESSION [None]
  - ANXIETY [None]
  - ASTHENIA [None]
  - BONE PAIN [None]
  - CHILLS [None]
  - CRYING [None]
  - DEPRESSION [None]
  - DYSPNOEA [None]
  - FATIGUE [None]
  - HEADACHE [None]
  - HOSTILITY [None]
  - MALIGNANT NEOPLASM PROGRESSION [None]
  - MULTIPLE MYELOMA [None]
  - PYREXIA [None]
  - RASH ERYTHEMATOUS [None]
  - SOMNOLENCE [None]
  - TREMOR [None]
